FAERS Safety Report 6232036-2 (Version None)
Quarter: 2009Q2

REPORT INFORMATION
  Report Type: 
  Country: None (occurrence: None)
  Receive Date: 20090616
  Receipt Date: 20090608
  Transmission Date: 20091009
  Serious: Yes (Other)
  Sender: FDA-Public Use
  Company Number: US-GENENTECH-284281

PATIENT
  Sex: Female
  Weight: 60.771 kg

DRUGS (2)
  1. XOLAIR [Suspect]
     Indication: ASTHMA
     Dosage: 375 UNK, Q2W
     Route: 058
     Dates: start: 20070901
  2. PREDNISONE [Concomitant]
     Indication: ASTHMA

REACTIONS (2)
  - ASTHMA [None]
  - DRUG EFFECT DECREASED [None]
